FAERS Safety Report 21394091 (Version 2)
Quarter: 2022Q4

REPORT INFORMATION
  Report Type: Spontaneous
  Country: IT (occurrence: IT)
  Receive Date: 20220930
  Receipt Date: 20221017
  Transmission Date: 20230112
  Serious: Yes (Other)
  Sender: FDA-Public Use
  Company Number: IT-AUROBINDO-AUR-APL-2022-036784

PATIENT
  Age: 62 Year
  Sex: Male

DRUGS (2)
  1. TERBINAFINE [Suspect]
     Active Substance: TERBINAFINE
     Indication: Trichophytic granuloma
     Dosage: 125 MILLIGRAM, ONCE A DAY
     Route: 065
  2. TERBINAFINE [Suspect]
     Active Substance: TERBINAFINE
     Indication: Fungal infection

REACTIONS (4)
  - Paradoxical drug reaction [Recovered/Resolved]
  - Inflammation [Recovered/Resolved]
  - Dermatophytosis [Recovered/Resolved]
  - Condition aggravated [Recovered/Resolved]
